FAERS Safety Report 9209366 (Version 1)
Quarter: 2013Q2

REPORT INFORMATION
  Report Type: Spontaneous
  Country: US (occurrence: None)
  Receive Date: 20130403
  Receipt Date: 20130403
  Transmission Date: 20140414
  Serious: No
  Sender: FDA-Public Use
  Company Number: None

PATIENT
  Age: 52 Year
  Sex: Male
  Weight: 81.65 kg

DRUGS (1)
  1. AZITHROMYCIN [Suspect]
     Indication: ANTIBIOTIC THERAPY
     Dosage: ONCE A DAY
     Dates: start: 20130315, end: 20130316

REACTIONS (1)
  - Local swelling [None]
